FAERS Safety Report 10729908 (Version 1)
Quarter: 2015Q1

REPORT INFORMATION
  Report Type: Spontaneous
  Country: US (occurrence: None)
  Receive Date: 20150121
  Receipt Date: 20150121
  Transmission Date: 20150721
  Serious: Yes (Disabling, Other)
  Sender: FDA-Public Use
  Company Number: None

PATIENT
  Age: 7 Year
  Sex: Male
  Weight: 24.95 kg

DRUGS (1)
  1. METADATE CD [Suspect]
     Active Substance: METHYLPHENIDATE HYDROCHLORIDE
     Indication: ATTENTION DEFICIT/HYPERACTIVITY DISORDER
     Dosage: 1, ONCE DAILY, TAKEN BY MOUTH
     Route: 048
     Dates: end: 20150120

REACTIONS (7)
  - Erection increased [None]
  - Restlessness [None]
  - Abdominal pain upper [None]
  - Hypophagia [None]
  - Weight decreased [None]
  - Skin disorder [None]
  - Headache [None]

NARRATIVE: CASE EVENT DATE: 20150120
